FAERS Safety Report 12305346 (Version 1)
Quarter: 2016Q2

REPORT INFORMATION
  Report Type: Report from Study
  Country: BR (occurrence: BR)
  Receive Date: 20160426
  Receipt Date: 20160426
  Transmission Date: 20160815
  Serious: Yes (Other)
  Sender: FDA-Public Use
  Company Number: BR-GLAXOSMITHKLINE-BR2016GSK055757

PATIENT
  Sex: Female
  Weight: 132 kg

DRUGS (3)
  1. SERETIDE [Suspect]
     Active Substance: FLUTICASONE PROPIONATE\SALMETEROL XINAFOATE
     Indication: ASTHMA
     Dosage: 2 PUFF(S), QD, 20 YEARS AGO
     Dates: end: 20160320
  2. LEVOFLOXACIN. [Concomitant]
     Active Substance: LEVOFLOXACIN
     Indication: PNEUMONIA
     Dosage: FOR SEVEN DAYS AND AFTER MORE SEVEN DAYS
  3. FLUTICASONE FUROATE + VILANTEROL TRIFENATATE [Suspect]
     Active Substance: FLUTICASONE FUROATE\VILANTEROL TRIFENATATE
     Indication: ASTHMA
     Dosage: 1 PUFF(S), QD, 100/25

REACTIONS (6)
  - Pneumonia [Unknown]
  - Therapeutic response unexpected [Unknown]
  - Fatigue [Unknown]
  - Dyspnoea [Unknown]
  - Drug ineffective [Recovered/Resolved]
  - Product use issue [Unknown]
